FAERS Safety Report 24141846 (Version 1)
Quarter: 2024Q3

REPORT INFORMATION
  Report Type: Spontaneous
  Country: CA (occurrence: None)
  Receive Date: 20240726
  Receipt Date: 20240726
  Transmission Date: 20241017
  Serious: Yes (Death)
  Sender: Public
  Company Number: None

PATIENT
  Age: 83 Year
  Sex: Male

DRUGS (1)
  1. PEMBROLIZUMAB [Suspect]
     Active Substance: PEMBROLIZUMAB
     Indication: Lung carcinoma cell type unspecified stage IV
     Dosage: OTHER FREQUENCY : D1, Q21 DAYS;?
     Route: 042
     Dates: start: 20210504, end: 20210504

REACTIONS (5)
  - Chills [None]
  - Fatigue [None]
  - Pulmonary embolism [None]
  - Sudden cardiac death [None]
  - Disease complication [None]

NARRATIVE: CASE EVENT DATE: 20210505
